FAERS Safety Report 8329416-8 (Version None)
Quarter: 2012Q2

REPORT INFORMATION
  Report Type: 
  Country: None (occurrence: None)
  Receive Date: 20120502
  Receipt Date: 20120419
  Transmission Date: 20120825
  Serious: Yes (Other)
  Sender: FDA-Public Use
  Company Number: AR-ROCHE-1064150

PATIENT
  Sex: Female

DRUGS (2)
  1. XOLAIR [Suspect]
     Indication: ASTHMA
     Dates: start: 20110701, end: 20111001
  2. XOLAIR [Suspect]
     Dates: start: 20111101, end: 20120301

REACTIONS (6)
  - PAIN [None]
  - PNEUMONIA [None]
  - PYREXIA [None]
  - SYSTEMIC LUPUS ERYTHEMATOSUS [None]
  - ALOPECIA [None]
  - FATIGUE [None]
